FAERS Safety Report 17427829 (Version 1)
Quarter: 2020Q1

REPORT INFORMATION
  Report Type: Spontaneous
  Country: US (occurrence: US)
  Receive Date: 20200131
  Receipt Date: 20200131
  Transmission Date: 20200409
  Serious: No
  Sender: FDA-Public Use
  Company Number: None

PATIENT

DRUGS (1)
  1. NIFEDIPINE. [Suspect]
     Active Substance: NIFEDIPINE

REACTIONS (8)
  - Dizziness [None]
  - Tremor [None]
  - Product dispensing error [None]
  - Palpitations [None]
  - Asthenia [None]
  - Vomiting [None]
  - Incorrect dose administered [None]
  - Anxiety [None]

NARRATIVE: CASE EVENT DATE: 2019
